FAERS Safety Report 8996463 (Version 1)
Quarter: 2013Q1

REPORT INFORMATION
  Report Type: Spontaneous
  Country: US (occurrence: US)
  Receive Date: 20130104
  Receipt Date: 20130104
  Transmission Date: 20140127
  Serious: No
  Sender: FDA-Public Use
  Company Number: US-BIOGENIDEC-2012BI057053

PATIENT
  Age: 47 Year
  Sex: Female

DRUGS (2)
  1. AVONEX [Suspect]
     Indication: MULTIPLE SCLEROSIS
     Route: 030
     Dates: start: 20080312
  2. AVONEX [Suspect]
     Indication: MULTIPLE SCLEROSIS
     Route: 030

REACTIONS (4)
  - Injection site rash [Unknown]
  - Injection site pain [Not Recovered/Not Resolved]
  - Contusion [Not Recovered/Not Resolved]
  - Injection site erythema [Not Recovered/Not Resolved]
